FAERS Safety Report 9063500 (Version 1)
Quarter: 2013Q1

REPORT INFORMATION
  Report Type: Report from Study
  Country: US (occurrence: US)
  Receive Date: 20130131
  Receipt Date: 20130131
  Transmission Date: 20140127
  Serious: Yes (Hospitalization)
  Sender: FDA-Public Use
  Company Number: US-ABBOTT-12P-163-1004831-00

PATIENT
  Sex: Female

DRUGS (2)
  1. HUMIRA [Suspect]
     Indication: RHEUMATOID ARTHRITIS
     Route: 058
     Dates: start: 201003
  2. STATIN DRUG [Concomitant]
     Indication: BLOOD CHOLESTEROL

REACTIONS (3)
  - Pneumonia [Recovered/Resolved]
  - Blood pressure increased [Unknown]
  - Myalgia [Unknown]
